FAERS Safety Report 8920396 (Version 1)
Quarter: 2012Q4

REPORT INFORMATION
  Report Type: 
  Country: FR (occurrence: FR)
  Receive Date: 20121122
  Receipt Date: 20121122
  Transmission Date: 20130627
  Serious: Yes (Other)
  Sender: FDA-Public Use
  Company Number: FR-JNJFOC-20121108646

PATIENT
  Age: 82 None
  Sex: Male
  Weight: 82 kg

DRUGS (4)
  1. XARELTO [Suspect]
     Indication: DEEP VEIN THROMBOSIS
     Route: 048
     Dates: start: 20121007, end: 20121017
  2. INNOHEP [Concomitant]
     Indication: THROMBOSIS
     Route: 065
  3. DECAPEPTYL [Concomitant]
     Indication: NEOPLASM PROSTATE
     Dosage: 22/5 every 6 months
     Route: 030
     Dates: start: 2003
  4. CASODEX [Concomitant]
     Indication: NEOPLASM PROSTATE
     Route: 048
     Dates: start: 2003

REACTIONS (4)
  - Face oedema [Recovering/Resolving]
  - Headache [Recovering/Resolving]
  - General physical health deterioration [Recovering/Resolving]
  - Back pain [Recovering/Resolving]
